FAERS Safety Report 23787412 (Version 1)
Quarter: 2024Q2

REPORT INFORMATION
  Report Type: Spontaneous
  Country: US (occurrence: US)
  Receive Date: 20240426
  Receipt Date: 20240426
  Transmission Date: 20240716
  Serious: Yes (Other)
  Sender: FDA-Public Use
  Company Number: US-GLAND PHARMA LIMITED-2024US001381

PATIENT
  Age: 65 Year
  Sex: Male

DRUGS (1)
  1. CISPLATIN [Suspect]
     Active Substance: CISPLATIN
     Indication: Squamous cell carcinoma of head and neck
     Dosage: UNK
     Route: 065

REACTIONS (2)
  - Arteriospasm coronary [Recovered/Resolved]
  - Product use in unapproved indication [Unknown]
